FAERS Safety Report 14774399 (Version 3)
Quarter: 2019Q3

REPORT INFORMATION
  Report Type: Spontaneous
  Country: US (occurrence: US)
  Receive Date: 20180418
  Receipt Date: 20190919
  Transmission Date: 20191004
  Serious: Yes (Hospitalization, Other)
  Sender: FDA-Public Use
  Company Number: US-JNJFOC-20180420004

PATIENT
  Age: 54 Year
  Sex: Female

DRUGS (1)
  1. INVOKANA [Suspect]
     Active Substance: CANAGLIFLOZIN
     Indication: TYPE 2 DIABETES MELLITUS
     Route: 048
     Dates: start: 20150629

REACTIONS (8)
  - Osteomyelitis [Unknown]
  - Gangrene [Unknown]
  - Diabetic foot infection [Unknown]
  - Amputation [Unknown]
  - Cellulitis [Unknown]
  - Diabetic foot [Unknown]
  - Acute kidney injury [Unknown]
  - Sepsis [Recovered/Resolved]

NARRATIVE: CASE EVENT DATE: 2015
